FAERS Safety Report 8168153-X (Version None)
Quarter: 2012Q1

REPORT INFORMATION
  Report Type: 
  Country: None (occurrence: None)
  Receive Date: 20120227
  Receipt Date: 20120221
  Transmission Date: 20120608
  Serious: Yes (Death, Other)
  Sender: FDA-Public Use
  Company Number: PHHY2011CA101617

PATIENT
  Sex: Male

DRUGS (1)
  1. SANDOSTATIN LAR [Suspect]
     Indication: ACROMEGALY
     Dosage: 20 MG, QMO
     Route: 030
     Dates: start: 20110908

REACTIONS (4)
  - HYPERTENSION [None]
  - UNRESPONSIVE TO STIMULI [None]
  - VOMITING [None]
  - CEREBRAL HAEMORRHAGE [None]
